FAERS Safety Report 8082733-1 (Version None)
Quarter: 2012Q1

REPORT INFORMATION
  Report Type: 
  Country: None (occurrence: None)
  Receive Date: 20120127
  Receipt Date: 20110208
  Transmission Date: 20120608
  Serious: Yes (Hospitalization)
  Sender: FDA-Public Use
  Company Number: US-ABBOTT-11P-163-0703788-00

PATIENT
  Sex: Male

DRUGS (5)
  1. ENTOCORT EC [Concomitant]
     Indication: CROHN'S DISEASE
  2. MORPHINE [Concomitant]
     Indication: PAIN
  3. PRILOSEC [Concomitant]
     Indication: GASTROOESOPHAGEAL REFLUX DISEASE
  4. HUMIRA [Suspect]
     Indication: CROHN'S DISEASE
  5. DILAUDID [Concomitant]
     Indication: PAIN

REACTIONS (1)
  - SMALL INTESTINAL RESECTION [None]
